FAERS Safety Report 6893388-3 (Version None)
Quarter: 2010Q3

REPORT INFORMATION
  Report Type: 
  Country: None (occurrence: None)
  Receive Date: 20100731
  Receipt Date: 20090901
  Transmission Date: 20110219
  Serious: No
  Sender: FDA-Public Use
  Company Number: US-PFIZER INC-2009236360

PATIENT
  Sex: Female
  Weight: 74.8 kg

DRUGS (5)
  1. LIPITOR [Suspect]
     Indication: BLOOD CHOLESTEROL INCREASED
     Dosage: 40 MG, 1X/DAY
     Route: 048
     Dates: start: 20090601, end: 20090601
  2. TOPROL-XL [Concomitant]
     Indication: HYPERTENSION
  3. LASIX [Concomitant]
     Indication: HYPERTENSION
  4. POTASSIUM [Concomitant]
  5. SYNTHROID [Concomitant]
     Indication: THYROID DISORDER

REACTIONS (13)
  - ARTHRALGIA [None]
  - ASTHENIA [None]
  - BLOOD POTASSIUM DECREASED [None]
  - DECREASED ACTIVITY [None]
  - FEELING ABNORMAL [None]
  - GASTRIC DISORDER [None]
  - HEPATIC ENZYME INCREASED [None]
  - HYPERTENSION [None]
  - MUSCULOSKELETAL STIFFNESS [None]
  - MYALGIA [None]
  - PAIN IN EXTREMITY [None]
  - PYREXIA [None]
  - RASH [None]
